FAERS Safety Report 5396875-2 (Version None)
Quarter: 2007Q3

REPORT INFORMATION
  Report Type: 
  Country: None (occurrence: None)
  Receive Date: 20070723
  Receipt Date: 20070710
  Transmission Date: 20080115
  Serious: Yes (Other)
  Sender: FDA-Public Use
  Company Number: 38889

PATIENT
  Age: 39 Year
  Sex: Female

DRUGS (4)
  1. DICYCLOMINE HCL [Suspect]
     Indication: ABDOMINAL PAIN
     Dosage: 10MG IV PUSH X 1 DOSE
     Dates: start: 20070710
  2. DICYCLOMINE HCL [Suspect]
     Indication: DIARRHOEA
     Dosage: 10MG IV PUSH X 1 DOSE
     Dates: start: 20070710
  3. PRILOSEC OTC [Concomitant]
  4. LEXAPRO [Concomitant]

REACTIONS (2)
  - THROMBOSIS [None]
  - WRONG DRUG ADMINISTERED [None]
